FAERS Safety Report 4634140-9 (Version None)
Quarter: 2005Q2

REPORT INFORMATION
  Report Type: 
  Country: None (occurrence: None)
  Receive Date: 20050413
  Receipt Date: 20050304
  Transmission Date: 20051028
  Serious: Yes (Disabling)
  Sender: FDA-Public Use
  Company Number: US-MERCK-0503USA00736

PATIENT
  Age: 12 Year
  Sex: Male
  Weight: 45 kg

DRUGS (3)
  1. SINGULAIR [Suspect]
     Indication: ASTHMA
     Route: 048
     Dates: start: 20041022, end: 20050223
  2. ZYRTEC [Concomitant]
     Indication: ASTHMA
     Route: 048
     Dates: start: 20041105, end: 20041213
  3. PULMICORT [Concomitant]
     Indication: ASTHMA
     Route: 055
     Dates: start: 20041022

REACTIONS (3)
  - AGGRESSION [None]
  - ANGER [None]
  - OPPOSITIONAL DEFIANT DISORDER [None]
